FAERS Safety Report 13678040 (Version 1)
Quarter: 2017Q2

REPORT INFORMATION
  Report Type: Spontaneous
  Country: US (occurrence: US)
  Receive Date: 20170621
  Receipt Date: 20170621
  Transmission Date: 20170830
  Serious: No
  Sender: FDA-Public Use
  Company Number: None

PATIENT
  Age: 47 Year
  Sex: Male

DRUGS (1)
  1. JAKAFI [Suspect]
     Active Substance: RUXOLITINIB
     Route: 048

REACTIONS (5)
  - Myalgia [None]
  - Fatigue [None]
  - Mental disorder [None]
  - Memory impairment [None]
  - Anaemia [None]

NARRATIVE: CASE EVENT DATE: 20170521
